FAERS Safety Report 21507147 (Version 1)
Quarter: 2022Q4

REPORT INFORMATION
  Report Type: Spontaneous
  Country: US (occurrence: None)
  Receive Date: 20221025
  Receipt Date: 20221025
  Transmission Date: 20230113
  Serious: No
  Sender: FDA-Public Use
  Company Number: None

PATIENT
  Age: 91 Year
  Sex: Male
  Weight: 90.22 kg

DRUGS (10)
  1. ERLEADA [Suspect]
     Active Substance: APALUTAMIDE
     Indication: Prostate cancer
     Dosage: FREQUENCY : DAILY;?
     Route: 048
     Dates: start: 20220905
  2. ABIRATERONE ACETATE [Suspect]
     Active Substance: ABIRATERONE ACETATE
     Indication: Prostate cancer
     Dosage: FREQUENCY : DAILY;?
     Route: 048
  3. ACETAMINOPHEN [Concomitant]
  4. CENTRUM SILVER [Concomitant]
  5. DILTIAZEM HCI ER [Concomitant]
  6. ELIQUIS [Concomitant]
  7. FISH OIL BURP-LESS [Concomitant]
  8. FUROSEMIDE GLUCOSAMINE [Concomitant]
  9. LEVOTHYROXINE SODIUM [Concomitant]
  10. TRELSTAR MIXJECT [Concomitant]

REACTIONS (1)
  - Disease progression [None]
